FAERS Safety Report 17050220 (Version 1)
Quarter: 2019Q4

REPORT INFORMATION
  Report Type: Spontaneous
  Country: US (occurrence: US)
  Receive Date: 20191119
  Receipt Date: 20191119
  Transmission Date: 20200122
  Serious: No
  Sender: FDA-Public Use
  Company Number: US-009507513-1911USA001450

PATIENT
  Sex: Male

DRUGS (1)
  1. ASMANEX [Suspect]
     Active Substance: MOMETASONE FUROATE
     Dosage: 1 INHALATION A NIGHT
     Route: 055
     Dates: start: 201311

REACTIONS (3)
  - No adverse event [Unknown]
  - Poor quality device used [Unknown]
  - Product quality issue [Unknown]

NARRATIVE: CASE EVENT DATE: 201910
